FAERS Safety Report 9438819 (Version 3)
Quarter: 2013Q4

REPORT INFORMATION
  Report Type: Spontaneous
  Country: BR (occurrence: BR)
  Receive Date: 20130802
  Receipt Date: 20131025
  Transmission Date: 20140711
  Serious: Yes (Other)
  Sender: FDA-Public Use
  Company Number: BR-ASTRAZENECA-2013SE57001

PATIENT
  Age: 78 Year
  Sex: Female
  Weight: 59 kg

DRUGS (7)
  1. CRESTOR [Suspect]
     Indication: BLOOD CHOLESTEROL ABNORMAL
     Route: 048
     Dates: start: 2009
  2. ABLOK [Suspect]
     Route: 065
     Dates: start: 2009
  3. NOLVADEX D [Suspect]
     Indication: BREAST CANCER
     Route: 048
     Dates: start: 201008, end: 201308
  4. NOLVADEX D [Suspect]
     Indication: BREAST CANCER
     Route: 048
     Dates: start: 201308, end: 201308
  5. CALCIUM [Concomitant]
  6. VITAMIN C [Concomitant]
  7. CONCOR [Concomitant]
     Indication: HYPERTENSION
     Dates: start: 201306

REACTIONS (5)
  - Blood pressure increased [Recovered/Resolved]
  - Breast cancer female [Recovering/Resolving]
  - Generalised erythema [Recovered/Resolved]
  - Headache [Recovered/Resolved]
  - Rash [Not Recovered/Not Resolved]
